FAERS Safety Report 17504733 (Version 2)
Quarter: 2020Q2

REPORT INFORMATION
  Report Type: Spontaneous
  Country: ES (occurrence: ES)
  Receive Date: 20200305
  Receipt Date: 20200611
  Transmission Date: 20200713
  Serious: Yes (Death, Life-Threatening, Other)
  Sender: FDA-Public Use
  Company Number: ES-009507513-2003ESP001107

PATIENT
  Age: 84 Year
  Sex: Female

DRUGS (3)
  1. AVIBACTAM SODIUM (+) CEFTAZIDIME [Suspect]
     Active Substance: AVIBACTAM SODIUM\CEFTAZIDIME
  2. ZINPLAVA [Suspect]
     Active Substance: BEZLOTOXUMAB
     Indication: CLOSTRIDIUM DIFFICILE INFECTION
     Dosage: UNK, QD
     Dates: start: 20190605
  3. VANCOMYCIN [Concomitant]
     Active Substance: VANCOMYCIN
     Indication: CLOSTRIDIUM DIFFICILE INFECTION
     Dosage: TAPERING
     Dates: start: 20190605

REACTIONS (5)
  - Complications of transplanted kidney [Fatal]
  - Pleural effusion [Fatal]
  - Chronic kidney disease [Fatal]
  - Respiratory failure [Fatal]
  - Therapy non-responder [Fatal]

NARRATIVE: CASE EVENT DATE: 20190722
